FAERS Safety Report 25614878 (Version 1)
Quarter: 2025Q3

REPORT INFORMATION
  Report Type: Spontaneous
  Country: GB (occurrence: GB)
  Receive Date: 20250729
  Receipt Date: 20250729
  Transmission Date: 20251021
  Serious: Yes (Hospitalization, Other)
  Sender: ACCORD
  Company Number: None

PATIENT
  Age: 71 Year
  Sex: Male
  Weight: 77 kg

DRUGS (4)
  1. APIXABAN [Suspect]
     Active Substance: APIXABAN
     Indication: Thrombosis prophylaxis
  2. TIMOLOL [Concomitant]
     Active Substance: TIMOLOL
     Indication: Glaucoma
  3. DORZOLAMIDE [Concomitant]
     Active Substance: DORZOLAMIDE
     Indication: Glaucoma
  4. APIXABAN [Suspect]
     Active Substance: APIXABAN
     Indication: Thrombosis prophylaxis
     Dosage: 3-6 MONTHS

REACTIONS (2)
  - Prostatic specific antigen increased [Unknown]
  - Treatment failure [Recovering/Resolving]

NARRATIVE: CASE EVENT DATE: 20250514
